FAERS Safety Report 4682062-X (Version None)
Quarter: 2005Q2

REPORT INFORMATION
  Report Type: 
  Country: None (occurrence: None)
  Receive Date: 20050602
  Receipt Date: 20040413
  Transmission Date: 20051028
  Serious: Yes (Hospitalization, Other)
  Sender: FDA-Public Use
  Company Number: 2004US000170

PATIENT
  Age: 46 Year
  Sex: Male

DRUGS (4)
  1. PROGRAF [Suspect]
     Indication: LIVER TRANSPLANT
     Dosage: 4.00 MG, BID, ORAL
     Route: 048
  2. IMURAN [Concomitant]
  3. MULTIVITAMINS (ERGOCALCIFEROL, PANTHENOL, NICOTINAMIDE, THIAMINE HYDRO [Concomitant]
  4. HEPATITIS B IMMUNE GLOBULIN (IMMUNOGLOBULIN ANTIHEPATITIS B) [Concomitant]

REACTIONS (1)
  - STATUS EPILEPTICUS [None]
